FAERS Safety Report 9051913 (Version 1)
Quarter: 2013Q1

REPORT INFORMATION
  Report Type: Spontaneous
  Country: US (occurrence: None)
  Receive Date: 20130130
  Receipt Date: 20130130
  Transmission Date: 20140127
  Serious: Yes (Hospitalization)
  Sender: FDA-Public Use
  Company Number: None

PATIENT
  Age: 48 Year
  Sex: Female
  Weight: 86 kg

DRUGS (1)
  1. REGORAFENIB [Suspect]
     Route: 048
     Dates: start: 20130111, end: 20130122

REACTIONS (3)
  - Gastrointestinal haemorrhage [None]
  - Dizziness [None]
  - Dizziness [None]
